FAERS Safety Report 21993229 (Version 1)
Quarter: 2023Q1

REPORT INFORMATION
  Report Type: Spontaneous
  Country: US (occurrence: US)
  Receive Date: 20230215
  Receipt Date: 20230215
  Transmission Date: 20230418
  Serious: Yes (Other)
  Sender: FDA-Public Use
  Company Number: US-AMNEAL PHARMACEUTICALS-2022-AMRX-04294

PATIENT
  Sex: Female

DRUGS (3)
  1. RYTARY [Suspect]
     Active Substance: CARBIDOPA\LEVODOPA
     Indication: Product used for unknown indication
     Dosage: 4 CAPSULES(23.75?95MG), 4 /DAY
     Route: 048
  2. RYTARY [Suspect]
     Active Substance: CARBIDOPA\LEVODOPA
     Dosage: 16 CAPSULES, 4 /DAY, 23.75?95MG CAP 4 CAPS @7AM, 3CAPS @10:30AM, 3 CAPS @1:30PM AND 4 CAPS @6PM
     Route: 048
  3. RYTARY [Suspect]
     Active Substance: CARBIDOPA\LEVODOPA
     Dosage: 4 CAPSULES(23.75?95 MG), 4 /DAY
     Route: 048

REACTIONS (3)
  - Intervertebral disc protrusion [Unknown]
  - Fatigue [Unknown]
  - COVID-19 [Unknown]
